FAERS Safety Report 5083851-2 (Version None)
Quarter: 2006Q3

REPORT INFORMATION
  Report Type: 
  Country: None (occurrence: None)
  Receive Date: 20060818
  Receipt Date: 20060811
  Transmission Date: 20061208
  Serious: Yes (Other)
  Sender: FDA-Public Use
  Company Number: GB-MERCK-0608GBR00052

PATIENT
  Sex: Male
  Weight: 81 kg

DRUGS (3)
  1. ZOCOR [Suspect]
     Indication: HYPERCHOLESTEROLAEMIA
     Route: 048
     Dates: start: 20060418, end: 20060421
  2. ZOCOR [Suspect]
     Route: 048
     Dates: start: 20060101, end: 20060101
  3. BIMATOPROST [Concomitant]
     Route: 065
     Dates: start: 20060316

REACTIONS (1)
  - PALPITATIONS [None]
